FAERS Safety Report 8884615 (Version 1)
Quarter: 2012Q4

REPORT INFORMATION
  Report Type: 
  Country: IE (occurrence: IE)
  Receive Date: 20121104
  Receipt Date: 20121104
  Transmission Date: 20130627
  Serious: Yes (Other)
  Sender: FDA-Public Use
  Company Number: IE-AMGEN-IRLSP2012069792

PATIENT
  Sex: Female

DRUGS (2)
  1. PROLIA [Suspect]
     Indication: OSTEOPOROSIS
     Dosage: 60 DF, q6mo
     Route: 030
     Dates: start: 20121015
  2. WARFARIN [Concomitant]
     Dosage: 6 mg, UNK

REACTIONS (1)
  - International normalised ratio increased [Unknown]
